FAERS Safety Report 5354052-5 (Version None)
Quarter: 2007Q2

REPORT INFORMATION
  Report Type: 
  Country: None (occurrence: None)
  Receive Date: 20070612
  Receipt Date: 20070607
  Transmission Date: 20071010
  Serious: Yes (Hospitalization)
  Sender: FDA-Public Use
  Company Number: A0654615A

PATIENT
  Age: 59 Year
  Sex: Female

DRUGS (9)
  1. AVANDIA [Suspect]
     Dosage: 1TAB IN THE MORNING
     Route: 048
  2. LIPITOR [Concomitant]
  3. LISINOPRIL [Concomitant]
  4. ASPIRIN [Concomitant]
  5. PLAVIX [Concomitant]
  6. METANX [Concomitant]
  7. METFORMIN HCL [Concomitant]
  8. METOPROLOL SUCCINATE [Concomitant]
  9. XANAX [Concomitant]

REACTIONS (2)
  - CHEST PAIN [None]
  - MYOCARDIAL INFARCTION [None]
